FAERS Safety Report 26020740 (Version 1)
Quarter: 2025Q4

REPORT INFORMATION
  Report Type: Spontaneous
  Country: US (occurrence: None)
  Receive Date: 20251110
  Receipt Date: 20251110
  Transmission Date: 20260117
  Serious: Yes (Hospitalization, Other)
  Sender: FDA-CTU
  Company Number: None

PATIENT
  Age: 64 Year
  Sex: Female
  Weight: 85.5 kg

DRUGS (7)
  1. HEPARIN [Suspect]
     Active Substance: HEPARIN SODIUM
     Indication: Thrombosis prophylaxis
     Route: 058
     Dates: start: 20251107, end: 20251107
  2. HYDRALAZINE [Concomitant]
     Active Substance: HYDRALAZINE HYDROCHLORIDE
  3. PROTONIX [Concomitant]
     Active Substance: PANTOPRAZOLE SODIUM
  4. DULOXETINE [Concomitant]
     Active Substance: DULOXETINE
  5. CETIRIZINE HYDROCHLORIDE [Concomitant]
     Active Substance: CETIRIZINE HYDROCHLORIDE
  6. LOSARTAN [Concomitant]
     Active Substance: LOSARTAN
  7. ASPIRIN [Concomitant]
     Active Substance: ASPIRIN

REACTIONS (6)
  - Flushing [None]
  - Feeling hot [None]
  - Headache [None]
  - Formication [None]
  - Rash pruritic [None]
  - Blood pressure increased [None]

NARRATIVE: CASE EVENT DATE: 20251107
